FAERS Safety Report 7040448-2 (Version None)
Quarter: 2010Q4

REPORT INFORMATION
  Report Type: 
  Country: None (occurrence: None)
  Receive Date: 20101008
  Receipt Date: 20101008
  Transmission Date: 20110411
  Serious: Yes (Hospitalization, Other)
  Sender: FDA-Public Use
  Company Number: None

PATIENT
  Sex: Female
  Weight: 73.4827 kg

DRUGS (2)
  1. HYDROCHLOROTHIAZDE TAB [Suspect]
     Indication: BLOOD PRESSURE
     Dosage: 25 MG 1 DAILY;
     Dates: start: 20100706
  2. POTASSIUM CHLORIDE [Suspect]
     Dosage: 10 MG

REACTIONS (4)
  - DYSPNOEA [None]
  - MYALGIA [None]
  - PHOTOPHOBIA [None]
  - VISION BLURRED [None]
